FAERS Safety Report 5648493-6 (Version None)
Quarter: 2008Q1

REPORT INFORMATION
  Report Type: 
  Country: None (occurrence: None)
  Receive Date: 20080131
  Receipt Date: 20071031
  Transmission Date: 20080703
  Serious: No
  Sender: FDA-Public Use
  Company Number: US200708002090

PATIENT
  Age: 69 Year
  Sex: Male
  Weight: 108.8 kg

DRUGS (7)
  1. BYETTA [Suspect]
     Indication: TYPE 2 DIABETES MELLITUS
     Dosage: SEE IMAGE
     Route: 058
     Dates: start: 20070617, end: 20070701
  2. BYETTA [Suspect]
     Indication: TYPE 2 DIABETES MELLITUS
     Dosage: SEE IMAGE
     Route: 058
     Dates: start: 20070618, end: 20070701
  3. BYETTA [Suspect]
     Indication: TYPE 2 DIABETES MELLITUS
     Dosage: SEE IMAGE
     Route: 058
     Dates: start: 20070701, end: 20071001
  4. BYETTA [Suspect]
     Indication: TYPE 2 DIABETES MELLITUS
     Dosage: SEE IMAGE
     Route: 058
     Dates: start: 20070701, end: 20071001
  5. BYETTA [Suspect]
  6. PREVACID [Concomitant]
  7. LANTUS [Concomitant]

REACTIONS (11)
  - BLOOD GLUCOSE INCREASED [None]
  - CHOLELITHIASIS [None]
  - DECREASED APPETITE [None]
  - FATIGUE [None]
  - FEELING ABNORMAL [None]
  - FEELING COLD [None]
  - GALLBLADDER DISORDER [None]
  - INSOMNIA [None]
  - NAUSEA [None]
  - VISION BLURRED [None]
  - WEIGHT DECREASED [None]
